FAERS Safety Report 9514949 (Version 1)
Quarter: 2013Q1

REPORT INFORMATION
  Report Type: Spontaneous
  Country: US (occurrence: None)
  Receive Date: 20130305
  Receipt Date: 20130305
  Transmission Date: 20140127
  Serious: Yes (Other)
  Sender: FDA-Public Use
  Company Number: 163-21880-12113154

PATIENT
  Age: 59 Year
  Sex: Male

DRUGS (8)
  1. REVLIMID (LENALIDOMIDE) [Suspect]
     Dates: start: 20121031
  2. ENOXAPARIN [Concomitant]
  3. DEXAMETHASONE [Concomitant]
  4. ZOMETA (ZOLEDRONIC ACID) [Concomitant]
  5. ACYCLOVIR (ACICLOVIR) [Concomitant]
  6. ALLOPURINOL [Concomitant]
  7. BACTRIM (BACTRIM) [Concomitant]
  8. VELCADE (BORTEZOMIB) [Concomitant]

REACTIONS (1)
  - Muscle spasms [None]
